FAERS Safety Report 5472785-7 (Version None)
Quarter: 2007Q4

REPORT INFORMATION
  Report Type: 
  Country: None (occurrence: None)
  Receive Date: 20071001
  Receipt Date: 20061020
  Transmission Date: 20080405
  Serious: No
  Sender: FDA-Public Use
  Company Number: US-ASTRAZENECA-2006UW20280

PATIENT
  Age: 51 Year
  Sex: Female
  Weight: 86.2 kg

DRUGS (5)
  1. ARIMIDEX [Suspect]
     Indication: BREAST CANCER METASTATIC
     Route: 048
     Dates: start: 20060801
  2. SEROQUEL [Concomitant]
     Route: 048
  3. AMBIEN [Concomitant]
  4. WELLBUTRIN [Concomitant]
  5. XANAX [Concomitant]

REACTIONS (2)
  - BURNING SENSATION [None]
  - SENSATION OF FOREIGN BODY [None]
